FAERS Safety Report 20816461 (Version 3)
Quarter: 2023Q2

REPORT INFORMATION
  Report Type: Other
  Country: AU (occurrence: AU)
  Receive Date: 20220512
  Receipt Date: 20230628
  Transmission Date: 20230721
  Serious: Yes (Other)
  Sender: FDA-Public Use
  Company Number: AU-TOLMAR, INC.-22AU033400

PATIENT
  Sex: Male

DRUGS (2)
  1. ELIGARD [Suspect]
     Active Substance: LEUPROLIDE ACETATE
     Indication: Prostate cancer
     Dosage: 45 MILLIGRAM, Q 6 MONTH
     Dates: start: 202006
  2. ELIGARD [Suspect]
     Active Substance: LEUPROLIDE ACETATE
     Dosage: 45 MILLIGRAM, Q 6 MONTH
     Dates: start: 20220307

REACTIONS (8)
  - Neuropathy peripheral [Unknown]
  - Metastases to bone [Unknown]
  - Prostatomegaly [Unknown]
  - Dermal cyst [Unknown]
  - Inappropriate schedule of product administration [Unknown]
  - Prostatic specific antigen increased [Unknown]
  - Dysuria [Unknown]
  - Pain [Unknown]
